FAERS Safety Report 8394883-0 (Version None)
Quarter: 2012Q2

REPORT INFORMATION
  Report Type: 
  Country: None (occurrence: None)
  Receive Date: 20120530
  Receipt Date: 20120516
  Transmission Date: 20120825
  Serious: Yes (Other)
  Sender: FDA-Public Use
  Company Number: AU-ELI_LILLY_AND_COMPANY-AU201205006248

PATIENT
  Age: 44 Year
  Sex: Male

DRUGS (2)
  1. STRATTERA [Suspect]
     Indication: ATTENTION DEFICIT/HYPERACTIVITY DISORDER
     Dosage: 60 MG, UNK
  2. STRATTERA [Suspect]
     Dosage: 1 DF, UNK

REACTIONS (3)
  - SUICIDAL IDEATION [None]
  - URINARY HESITATION [None]
  - SEXUAL DYSFUNCTION [None]
